FAERS Safety Report 24030467 (Version 10)
Quarter: 2025Q4

REPORT INFORMATION
  Report Type: Spontaneous
  Country: GB (occurrence: GB)
  Receive Date: 20240628
  Receipt Date: 20251027
  Transmission Date: 20260117
  Serious: Yes (Hospitalization, Other)
  Sender: MYLAN
  Company Number: GB-TAKEDA-2023TUS033645

PATIENT
  Age: 73 Year
  Sex: Female

DRUGS (14)
  1. AMLODIPINE BESYLATE [Suspect]
     Active Substance: AMLODIPINE BESYLATE
     Indication: Hypertension
     Dosage: 5 MILLIGRAM, QD (ONCE A DAY)
  2. ENTYVIO [Suspect]
     Active Substance: VEDOLIZUMAB
     Indication: Crohn^s disease
     Dosage: 300 MILLIGRAM (300 MILLIGRAM, Q4WEEKS)
  3. ENTYVIO [Suspect]
     Active Substance: VEDOLIZUMAB
     Dosage: 300 MILLIGRAM (300 MILLIGRAM, Q4WEEKS)
  4. ENTYVIO [Suspect]
     Active Substance: VEDOLIZUMAB
     Dosage: 300 MILLIGRAM (300 MILLIGRAM, Q4WEEKS)
  5. ENTYVIO [Suspect]
     Active Substance: VEDOLIZUMAB
     Dosage: 300 MILLIGRAM (300 MILLIGRAM, Q4WEEKS)
  6. ENTYVIO [Suspect]
     Active Substance: VEDOLIZUMAB
     Dosage: 300 MILLIGRAM (300 MILLIGRAM, Q4WEEKS)
  7. ENTYVIO [Suspect]
     Active Substance: VEDOLIZUMAB
     Dosage: 300 MILLIGRAM (300 MILLIGRAM, Q4WEEKS)
  8. ENTYVIO [Suspect]
     Active Substance: VEDOLIZUMAB
     Dosage: 300 MILLIGRAM (300 MILLIGRAM, Q4WEEKS)
  9. ENTYVIO [Suspect]
     Active Substance: VEDOLIZUMAB
     Dosage: 300 MILLIGRAM (300 MILLIGRAM, Q4WEEKS)
  10. ENTYVIO [Suspect]
     Active Substance: VEDOLIZUMAB
     Dosage: 300 MILLIGRAM (300 MILLIGRAM, Q4WEEKS)
  11. ENTYVIO [Suspect]
     Active Substance: VEDOLIZUMAB
     Dosage: 300 MILLIGRAM (300 MILLIGRAM, Q4WEEKS)
  12. ENTYVIO [Suspect]
     Active Substance: VEDOLIZUMAB
     Dosage: 300 MILLIGRAM (300 MILLIGRAM, Q4WEEKS)
  13. INFLIXIMAB [Suspect]
     Active Substance: INFLIXIMAB
     Indication: Product used for unknown indication
     Dosage: UNK
  14. BUTYLSCOPOLAMINE BROMIDE [Concomitant]
     Active Substance: BUTYLSCOPOLAMINE BROMIDE
     Indication: Gastrointestinal pain
     Dosage: UNK

REACTIONS (29)
  - Oesophagitis [Unknown]
  - Large intestine polyp [Unknown]
  - Helicobacter infection [Recovered/Resolved]
  - Blood pressure increased [Unknown]
  - Infusion site extravasation [Not Recovered/Not Resolved]
  - Glaucoma [Unknown]
  - Cataract [Unknown]
  - Diarrhoea [Unknown]
  - Malaise [Unknown]
  - Vomiting [Unknown]
  - Night sweats [Unknown]
  - Anal incontinence [Unknown]
  - Gastroenteritis salmonella [Recovered/Resolved]
  - Cough [Unknown]
  - Dizziness [Recovered/Resolved]
  - Fatigue [Not Recovered/Not Resolved]
  - Hiatus hernia [Unknown]
  - Neuralgia [Unknown]
  - Poor venous access [Unknown]
  - Oral blood blister [Unknown]
  - Hypertension [Unknown]
  - Nasal congestion [Unknown]
  - Inappropriate schedule of product administration [Unknown]
  - Faecal calprotectin increased [Not Recovered/Not Resolved]
  - Gastrointestinal pain [Unknown]
  - Product distribution issue [Unknown]
  - Blood urea abnormal [Unknown]
  - Blood electrolytes abnormal [Unknown]
  - Muscle spasms [Not Recovered/Not Resolved]

NARRATIVE: CASE EVENT DATE: 20231209
